FAERS Safety Report 11989535 (Version 2)
Quarter: 2016Q1

REPORT INFORMATION
  Report Type: Spontaneous
  Country: US (occurrence: US)
  Receive Date: 20160202
  Receipt Date: 20160203
  Transmission Date: 20160526
  Serious: No
  Sender: FDA-Public Use
  Company Number: US-AMGEN-USASP2016009088

PATIENT
  Age: 55 Year
  Sex: Female

DRUGS (17)
  1. OMEPRAZOLE. [Concomitant]
     Active Substance: OMEPRAZOLE
  2. HYDROCODONE BITARTRATE AND ACETAMINOPHEN [Concomitant]
     Active Substance: ACETAMINOPHEN\HYDROCODONE BITARTRATE
  3. ZONISAMIDE. [Concomitant]
     Active Substance: ZONISAMIDE
  4. CEVIMELINE. [Concomitant]
     Active Substance: CEVIMELINE
  5. IMIPRAMINE [Concomitant]
     Active Substance: IMIPRAMINE
  6. ZANTAC [Concomitant]
     Active Substance: RANITIDINE HYDROCHLORIDE
  7. CEFDINIR. [Concomitant]
     Active Substance: CEFDINIR
  8. ENBREL [Suspect]
     Active Substance: ETANERCEPT
     Indication: RHEUMATOID ARTHRITIS
     Dosage: 50 MG, QWK
     Route: 058
     Dates: start: 20090729, end: 201512
  9. CYCLOBENZAPRINE [Concomitant]
     Active Substance: CYCLOBENZAPRINE
  10. METHOTREXATE [Concomitant]
     Active Substance: METHOTREXATE
  11. FENTANYL. [Concomitant]
     Active Substance: FENTANYL
  12. PREDNISONE. [Concomitant]
     Active Substance: PREDNISONE
  13. VITAMIN D2 [Concomitant]
     Active Substance: ERGOCALCIFEROL
  14. MISOPROSTOL. [Concomitant]
     Active Substance: MISOPROSTOL
  15. MELOXICAM. [Concomitant]
     Active Substance: MELOXICAM
  16. PROGESTERONE. [Concomitant]
     Active Substance: PROGESTERONE
  17. TRAMADOL. [Concomitant]
     Active Substance: TRAMADOL

REACTIONS (2)
  - Nasal discharge discolouration [Unknown]
  - Sinusitis [Unknown]

NARRATIVE: CASE EVENT DATE: 201512
